FAERS Safety Report 15633927 (Version 2)
Quarter: 2018Q4

REPORT INFORMATION
  Report Type: Spontaneous
  Country: BR (occurrence: BR)
  Receive Date: 20181119
  Receipt Date: 20181120
  Transmission Date: 20190205
  Serious: Yes (Other)
  Sender: FDA-Public Use
  Company Number: BR-PFIZER INC-2018397230

PATIENT
  Age: 81 Year
  Sex: Female

DRUGS (2)
  1. LORAX [Suspect]
     Active Substance: LORAZEPAM
     Indication: INSOMNIA
  2. LORAX [Suspect]
     Active Substance: LORAZEPAM
     Indication: ANXIETY
     Dosage: 2 MG, 2X/DAY
     Dates: end: 2018

REACTIONS (6)
  - Bone erosion [Not Recovered/Not Resolved]
  - Gait disturbance [Not Recovered/Not Resolved]
  - Therapeutic response unexpected [Unknown]
  - Pre-existing condition improved [Unknown]
  - Spinal deformity [Not Recovered/Not Resolved]
  - Malaise [Not Recovered/Not Resolved]
